FAERS Safety Report 8690841 (Version 4)
Quarter: 2013Q1

REPORT INFORMATION
  Report Type: Spontaneous
  Country: US (occurrence: US)
  Receive Date: 20120729
  Receipt Date: 20130117
  Transmission Date: 20140127
  Serious: No
  Sender: FDA-Public Use
  Company Number: US-009507513-1207USA009605

PATIENT
  Age: 62 Year
  Sex: Female

DRUGS (3)
  1. EMEND [Suspect]
     Indication: PROPHYLAXIS OF NAUSEA AND VOMITING
     Dosage: UNK
     Route: 048
     Dates: start: 201101
  2. SYNTHROID [Concomitant]
  3. ONDANSETRON [Concomitant]

REACTIONS (5)
  - Skin atrophy [Recovering/Resolving]
  - Skin haemorrhage [Recovering/Resolving]
  - Skin fissures [Recovering/Resolving]
  - Nausea [Recovering/Resolving]
  - Capsule physical issue [Unknown]
